FAERS Safety Report 18881904 (Version 3)
Quarter: 2021Q1

REPORT INFORMATION
  Report Type: Report from Study
  Country: None (occurrence: US)
  Receive Date: 20210211
  Receipt Date: 20210224
  Transmission Date: 20210420
  Serious: Yes (Hospitalization)
  Sender: FDA-Public Use
  Company Number: US-ABBVIE-21K-163-3767906-00

PATIENT
  Age: 73 Year
  Sex: Female

DRUGS (10)
  1. CARBIDOPA/LEVODOPA [Concomitant]
     Active Substance: CARBIDOPA\LEVODOPA
     Indication: PRODUCT USED FOR UNKNOWN INDICATION
  2. AMANTADINE. [Concomitant]
     Active Substance: AMANTADINE HYDROCHLORIDE
     Indication: PRODUCT USED FOR UNKNOWN INDICATION
  3. PRAMIPEXOLE ER [Concomitant]
     Active Substance: PRAMIPEXOLE DIHYDROCHLORIDE
     Indication: PRODUCT USED FOR UNKNOWN INDICATION
  4. MIRAPEX [Concomitant]
     Active Substance: PRAMIPEXOLE DIHYDROCHLORIDE
     Indication: PRODUCT USED FOR UNKNOWN INDICATION
  5. DUOPA [Suspect]
     Active Substance: CARBIDOPA\LEVODOPA
     Indication: PARKINSON^S DISEASE
     Route: 050
     Dates: start: 20180417
  6. DUOPA [Suspect]
     Active Substance: CARBIDOPA\LEVODOPA
  7. COVID VACCINE [Concomitant]
     Indication: COVID-19 IMMUNISATION
     Dosage: MFR?MODERNA
     Route: 030
     Dates: start: 20210120, end: 20210120
  8. NEXIUM [Concomitant]
     Active Substance: ESOMEPRAZOLE MAGNESIUM
     Indication: PRODUCT USED FOR UNKNOWN INDICATION
  9. CARBIDOPA?LEVODOPA?B [Concomitant]
     Active Substance: CARBIDOPA\LEVODOPA
     Indication: PRODUCT USED FOR UNKNOWN INDICATION
  10. IRON [Concomitant]
     Active Substance: IRON
     Indication: PRODUCT USED FOR UNKNOWN INDICATION
     Dosage: 18.0.4 MG

REACTIONS (11)
  - Fall [Recovered/Resolved]
  - Device connection issue [Recovered/Resolved]
  - Device breakage [Unknown]
  - Head injury [Recovered/Resolved]
  - Head injury [Unknown]
  - Fall [Unknown]
  - Cerebral haemorrhage [Recovered/Resolved]
  - Haemorrhage intracranial [Unknown]
  - Skin haemorrhage [Recovered/Resolved]
  - Fall [Recovered/Resolved with Sequelae]
  - Skin laceration [Unknown]

NARRATIVE: CASE EVENT DATE: 20201213
